FAERS Safety Report 8845064 (Version 1)
Quarter: 2012Q4

REPORT INFORMATION
  Report Type: Report from Study
  Country: US (occurrence: US)
  Receive Date: 20121017
  Receipt Date: 20121017
  Transmission Date: 20130627
  Serious: Yes (Disabling, Other)
  Sender: FDA-Public Use
  Company Number: US-PFIZER INC-2011255350

PATIENT
  Sex: Female

DRUGS (1)
  1. NEURONTIN [Suspect]
     Dosage: UNK

REACTIONS (10)
  - Cerebrovascular accident [Unknown]
  - Pain in extremity [Unknown]
  - Fall [Unknown]
  - Carpal tunnel syndrome [Unknown]
  - Tendonitis [Unknown]
  - Drug dependence [Unknown]
  - Hypoaesthesia [Unknown]
  - Eating disorder [Unknown]
  - Memory impairment [Unknown]
  - Somnolence [Recovered/Resolved]
